FAERS Safety Report 9757335 (Version 2)
Quarter: 2013Q4

REPORT INFORMATION
  Report Type: Spontaneous
  Country: US (occurrence: US)
  Receive Date: 20131214
  Receipt Date: 20131214
  Transmission Date: 20140711
  Serious: No
  Sender: FDA-Public Use
  Company Number: US-009507513-1311USA012741

PATIENT
  Sex: Female

DRUGS (3)
  1. VICTRELIS [Suspect]
     Indication: HEPATITIS C
     Dosage: 800 MG EVERY 8-9 HOURSUNK
     Route: 048
     Dates: start: 20130918
  2. PEGASYS [Suspect]
     Indication: HEPATITIS C
     Dosage: UNK
     Dates: start: 20130918
  3. REBETOL [Suspect]
     Indication: HEPATITIS C
     Dosage: UNK
     Dates: start: 20130918

REACTIONS (4)
  - Metabolic disorder [Unknown]
  - Nausea [Unknown]
  - Intentional drug misuse [Unknown]
  - Incorrect drug administration duration [Unknown]
